FAERS Safety Report 5927521-4 (Version None)
Quarter: 2008Q4

REPORT INFORMATION
  Report Type: 
  Country: None (occurrence: None)
  Receive Date: 20081023
  Receipt Date: 20081014
  Transmission Date: 20090506
  Serious: Yes (Death, Hospitalization)
  Sender: FDA-Public Use
  Company Number: FI-ROCHE-584526

PATIENT
  Age: 70 Year
  Sex: Male

DRUGS (1)
  1. XELODA [Suspect]
     Route: 065

REACTIONS (1)
  - SEPSIS [None]
